FAERS Safety Report 6510146-X (Version None)
Quarter: 2009Q4

REPORT INFORMATION
  Report Type: 
  Country: None (occurrence: None)
  Receive Date: 20091222
  Receipt Date: 20091215
  Transmission Date: 20100525
  Serious: Yes (Hospitalization)
  Sender: FDA-Public Use
  Company Number: B0617786A

PATIENT
  Sex: Female
  Weight: 83.6 kg

DRUGS (6)
  1. LAPATINIB [Suspect]
     Indication: BREAST CANCER
     Dosage: 1000MG PER DAY
     Route: 048
     Dates: start: 20090925
  2. TRASTUZUMAB [Suspect]
     Indication: BREAST CANCER
     Dosage: 2MGK WEEKLY
     Route: 042
     Dates: start: 20090924
  3. PACLITAXEL [Suspect]
     Indication: BREAST CANCER
     Dosage: 80MGM2 WEEKLY
     Route: 042
     Dates: start: 20090924
  4. NEXIUM [Concomitant]
     Indication: DYSPEPSIA
     Dosage: 40MG PER DAY
     Route: 048
  5. ORDINE [Concomitant]
     Indication: COUGH
     Dosage: 5MG FOUR TIMES PER DAY
     Route: 048
     Dates: start: 20091101
  6. SYMBICORT [Concomitant]
     Indication: COUGH
     Dates: start: 20091123

REACTIONS (4)
  - COUGH [None]
  - DEHYDRATION [None]
  - DYSPNOEA [None]
  - PYREXIA [None]
